FAERS Safety Report 22704223 (Version 7)
Quarter: 2024Q3

REPORT INFORMATION
  Report Type: Report from Study
  Country: CA (occurrence: CA)
  Receive Date: 20230714
  Receipt Date: 20240724
  Transmission Date: 20241017
  Serious: Yes (Hospitalization)
  Sender: JOHNSON AND JOHNSON
  Company Number: CA-JNJFOC-20230521563

PATIENT
  Age: 81 Year
  Sex: Female

DRUGS (2)
  1. REMICADE [Suspect]
     Active Substance: INFLIXIMAB
     Indication: Crohn^s disease
     Route: 042
     Dates: start: 20180410
  2. REMICADE [Suspect]
     Active Substance: INFLIXIMAB
     Route: 042
     Dates: start: 20101006

REACTIONS (9)
  - Kidney infection [Recovered/Resolved]
  - Staphylococcal infection [Unknown]
  - Thyroid disorder [Unknown]
  - Heart rate increased [Unknown]
  - Malaise [Unknown]
  - Constipation [Unknown]
  - Abdominal pain [Unknown]
  - General physical health deterioration [Unknown]
  - Inflammation [Not Recovered/Not Resolved]

NARRATIVE: CASE EVENT DATE: 20231130
